FAERS Safety Report 7012620-9 (Version None)
Quarter: 2010Q3

REPORT INFORMATION
  Report Type: 
  Country: None (occurrence: None)
  Receive Date: 20100924
  Receipt Date: 20100915
  Transmission Date: 20110219
  Serious: Yes (Other)
  Sender: FDA-Public Use
  Company Number: US-NAPPMUNDI-GBR-2010-0007074

PATIENT
  Age: 54 Year
  Sex: Female

DRUGS (4)
  1. HYDROMORPHONE HCL [Suspect]
     Indication: BACK PAIN
     Dosage: UNK
     Route: 042
  2. HYDROMORPHONE HCL [Suspect]
     Route: 008
  3. FENTANYL CITRATE [Suspect]
     Dosage: 60 MCG, Q1H
  4. BUPIVACAINE HCL [Suspect]

REACTIONS (2)
  - CONFUSIONAL STATE [None]
  - DELIRIUM [None]
